APPROVED DRUG PRODUCT: CARVEDILOL
Active Ingredient: CARVEDILOL
Strength: 25MG
Dosage Form/Route: TABLET;ORAL
Application: A078227 | Product #004 | TE Code: AB
Applicant: SANDOZ INC
Approved: Sep 5, 2007 | RLD: No | RS: No | Type: RX